FAERS Safety Report 7500162-3 (Version None)
Quarter: 2011Q2

REPORT INFORMATION
  Report Type: 
  Country: None (occurrence: None)
  Receive Date: 20110524
  Receipt Date: 20110511
  Transmission Date: 20111010
  Serious: Yes (Other)
  Sender: FDA-Public Use
  Company Number: DE-JNJFOC-20110509576

PATIENT
  Age: 8 Decade
  Sex: Female
  Weight: 58 kg

DRUGS (11)
  1. TARGIN [Concomitant]
     Route: 065
  2. NSAID'S [Concomitant]
     Route: 065
  3. METAMIZOL [Concomitant]
     Route: 065
  4. JURNISTA [Concomitant]
     Route: 065
  5. TEMGESIC [Concomitant]
     Route: 065
  6. ALL OTHER THERAPEUTIC PRODUCTS [Concomitant]
     Route: 065
  7. TAPENTADOL [Suspect]
     Indication: PAIN
     Route: 048
     Dates: start: 20101014, end: 20101122
  8. BUPRENORPHINE [Concomitant]
     Route: 065
  9. NALOXONE HYDROCHLORIDE W/TILIDINE HYDROCHLO. [Concomitant]
     Route: 065
  10. GABAPENTIN [Concomitant]
     Route: 065
  11. TRAMADOL HCL [Concomitant]
     Route: 065

REACTIONS (3)
  - DIZZINESS [None]
  - GAIT DISTURBANCE [None]
  - SOMNOLENCE [None]
